FAERS Safety Report 13074999 (Version 3)
Quarter: 2017Q1

REPORT INFORMATION
  Report Type: Spontaneous
  Country: US (occurrence: US)
  Receive Date: 20161230
  Receipt Date: 20170208
  Transmission Date: 20170428
  Serious: Yes (Hospitalization, Other)
  Sender: FDA-Public Use
  Company Number: US-ASTRAZENECA-2016SF37189

PATIENT
  Age: 72 Year
  Sex: Male
  Weight: 81.7 kg

DRUGS (17)
  1. FINASTERIDE. [Concomitant]
     Active Substance: FINASTERIDE
  2. FISH OIL [Concomitant]
     Active Substance: FISH OIL
  3. COQ10 [Concomitant]
     Active Substance: UBIDECARENONE
  4. NEXIUM 24HR [Suspect]
     Active Substance: ESOMEPRAZOLE MAGNESIUM
     Indication: DYSPHAGIA
     Route: 048
  5. NEXIUM [Suspect]
     Active Substance: ESOMEPRAZOLE MAGNESIUM
     Indication: GASTROOESOPHAGEAL REFLUX DISEASE
     Route: 048
     Dates: end: 2014
  6. LIVALO [Concomitant]
     Active Substance: PITAVASTATIN CALCIUM
  7. VITAMIN C [Concomitant]
     Active Substance: ASCORBIC ACID
  8. VITAMIN D [Concomitant]
     Active Substance: CHOLECALCIFEROL
  9. NEXIUM 24HR [Suspect]
     Active Substance: ESOMEPRAZOLE MAGNESIUM
     Indication: DYSPHAGIA
     Route: 048
     Dates: start: 2014
  10. NEXIUM 24HR [Suspect]
     Active Substance: ESOMEPRAZOLE MAGNESIUM
     Indication: DYSPHAGIA
     Route: 048
     Dates: end: 201611
  11. NEXIUM 24HR [Suspect]
     Active Substance: ESOMEPRAZOLE MAGNESIUM
     Indication: GASTROOESOPHAGEAL REFLUX DISEASE
     Route: 048
  12. ALLOPURINOL. [Concomitant]
     Active Substance: ALLOPURINOL
  13. ASPIRIN. [Concomitant]
     Active Substance: ASPIRIN
  14. NEXIUM 24HR [Suspect]
     Active Substance: ESOMEPRAZOLE MAGNESIUM
     Indication: GASTROOESOPHAGEAL REFLUX DISEASE
     Route: 048
     Dates: start: 2014
  15. NEXIUM 24HR [Suspect]
     Active Substance: ESOMEPRAZOLE MAGNESIUM
     Indication: GASTROOESOPHAGEAL REFLUX DISEASE
     Route: 048
     Dates: end: 201611
  16. ATACAND [Concomitant]
     Active Substance: CANDESARTAN CILEXETIL
  17. VITAMIN B [Concomitant]
     Active Substance: VITAMIN B

REACTIONS (5)
  - Pain [Recovered/Resolved]
  - Renal disorder [Not Recovered/Not Resolved]
  - Product use issue [Recovered/Resolved]
  - Chronic kidney disease [Recovering/Resolving]
  - Protein urine [Not Recovered/Not Resolved]

NARRATIVE: CASE EVENT DATE: 2014
